FAERS Safety Report 9617169 (Version 2)
Quarter: 2013Q4

REPORT INFORMATION
  Report Type: Report from Study
  Country: CA (occurrence: CA)
  Receive Date: 20131011
  Receipt Date: 20131011
  Transmission Date: 20140711
  Serious: Yes (Hospitalization)
  Sender: FDA-Public Use
  Company Number: CA-ABBVIE-13P-028-1151054-00

PATIENT
  Sex: Female

DRUGS (1)
  1. HUMIRA [Suspect]
     Indication: ANKYLOSING SPONDYLITIS
     Route: 058
     Dates: start: 20130823

REACTIONS (5)
  - Neck pain [Unknown]
  - Arthralgia [Unknown]
  - Pelvic pain [Unknown]
  - Back pain [Unknown]
  - Pain in extremity [Unknown]
